FAERS Safety Report 8988644 (Version 1)
Quarter: 2012Q4

REPORT INFORMATION
  Report Type: 
  Country: US (occurrence: US)
  Receive Date: 20121228
  Receipt Date: 20121228
  Transmission Date: 20130627
  Serious: Yes (Other)
  Sender: FDA-Public Use
  Company Number: US-BAYER-2012-135640

PATIENT
  Age: 23 Year
  Sex: Female

DRUGS (4)
  1. YAZ [Suspect]
     Dosage: UNK
     Dates: start: 2010
  2. OCELLA [Suspect]
     Dosage: UNK
     Dates: start: 2010
  3. BEYAZ [Suspect]
     Dosage: UNK
     Dates: start: 2010
  4. YASMIN [Suspect]
     Dosage: UNK
     Dates: start: 2010

REACTIONS (6)
  - Gallbladder disorder [None]
  - Injury [None]
  - Pain [None]
  - Emotional distress [None]
  - Anxiety [None]
  - Psychological trauma [None]
